FAERS Safety Report 10970634 (Version 2)
Quarter: 2015Q2

REPORT INFORMATION
  Report Type: Spontaneous
  Country: US (occurrence: None)
  Receive Date: 20150327
  Receipt Date: 20150422
  Transmission Date: 20150821
  Serious: No
  Sender: FDA-Public Use
  Company Number: DEP_02606_2015

PATIENT
  Sex: Female

DRUGS (3)
  1. QUETIAPINE 200 MG (QUETIAPINE) [Suspect]
     Active Substance: QUETIAPINE
     Indication: INTENTIONAL PRODUCT MISUSE
     Dosage: TAKING TWO TO THREE 200 MG TABLETS
  2. GABAPENTIN 300 MG [Suspect]
     Active Substance: GABAPENTIN
     Indication: INTENTIONAL PRODUCT MISUSE
     Dosage: TAKING THREE TO FOUR 300 MG TABLETS
  3. ALCOHOL. [Suspect]
     Active Substance: ALCOHOL
     Indication: INTENTIONAL PRODUCT MISUSE
     Dosage: DF

REACTIONS (1)
  - Intentional product misuse [None]
